FAERS Safety Report 11074477 (Version 1)
Quarter: 2015Q2

REPORT INFORMATION
  Report Type: Report from Study
  Country: US (occurrence: US)
  Receive Date: 20150429
  Receipt Date: 20150429
  Transmission Date: 20150821
  Serious: Yes (Hospitalization, Other)
  Sender: FDA-Public Use
  Company Number: US-SA-2014SA124937

PATIENT
  Age: 62 Year
  Sex: Female

DRUGS (4)
  1. LANTUS SOLOSTAR [Suspect]
     Active Substance: INSULIN GLARGINE
     Indication: TYPE 2 DIABETES MELLITUS
     Dosage: 28 IN MORNING AND DOSE:24 UNIT(S)
     Route: 065
  2. SOLOSTAR [Concomitant]
     Active Substance: DEVICE
  3. LANTUS SOLOSTAR [Suspect]
     Active Substance: INSULIN GLARGINE
     Indication: TYPE 2 DIABETES MELLITUS
     Dosage: 28 IN MORNING AND 34 AT NIGHT
     Route: 065
  4. JANUVIA [Concomitant]
     Active Substance: SITAGLIPTIN PHOSPHATE
     Route: 048

REACTIONS (15)
  - Gait disturbance [Unknown]
  - Hemiplegia [Unknown]
  - Blood glucose increased [Unknown]
  - Insomnia [Unknown]
  - Abdominal pain upper [Unknown]
  - Glycosylated haemoglobin increased [Unknown]
  - Fatigue [Unknown]
  - Hypoacusis [Unknown]
  - Balance disorder [Unknown]
  - Surgery [Unknown]
  - Cystitis [Unknown]
  - Weight increased [Unknown]
  - Cerebrovascular accident [Unknown]
  - Feeling abnormal [Unknown]
  - Drug administration error [Unknown]

NARRATIVE: CASE EVENT DATE: 20150417
